FAERS Safety Report 4832500-4 (Version None)
Quarter: 2005Q4

REPORT INFORMATION
  Report Type: 
  Country: None (occurrence: None)
  Receive Date: 20051117
  Receipt Date: 20051021
  Transmission Date: 20060501
  Serious: Yes (Hospitalization)
  Sender: FDA-Public Use
  Company Number: 1839

PATIENT
  Age: 39 Year
  Sex: Female
  Weight: 71.2147 kg

DRUGS (4)
  1. AMNESTEEM [Suspect]
     Indication: ACNE
     Dosage: PO
     Route: 048
     Dates: start: 20040702, end: 20050301
  2. QUETIAPINE FUMARATE [Concomitant]
  3. OXCARBAZEPINE [Concomitant]
  4. TOPIRAMATE [Concomitant]

REACTIONS (5)
  - CONDITION AGGRAVATED [None]
  - DEPRESSION [None]
  - MALAISE [None]
  - MENTAL DISORDER [None]
  - PSYCHOTIC DISORDER [None]
